FAERS Safety Report 7932511 (Version 3)
Quarter: 2012Q4

REPORT INFORMATION
  Report Type: 
  Country: FR (occurrence: FR)
  Receive Date: 20110505
  Receipt Date: 20120925
  Transmission Date: 20130627
  Serious: Yes (Hospitalization)
  Sender: FDA-Public Use
  Company Number: FR-ASTRAZENECA-2011SE24986

PATIENT
  Age: 69 Year
  Sex: Male

DRUGS (14)
  1. MOPRALPRO [Suspect]
     Indication: GASTRITIS PROPHYLAXIS
     Route: 048
     Dates: start: 2005, end: 2010
  2. MOPRALPRO [Suspect]
     Indication: GASTRITIS PROPHYLAXIS
     Route: 048
  3. LERCAN [Concomitant]
     Dosage: LONG LASTING
     Route: 048
  4. TAHOR [Concomitant]
     Dosage: LONG LASTING
     Route: 048
  5. OXAZEPAM [Concomitant]
     Dosage: LONG LASTING
     Route: 048
  6. RISPERDAL [Concomitant]
     Dosage: LONG LASTING
     Route: 048
  7. NORSET [Concomitant]
     Dosage: LONG LASTING
     Route: 048
  8. KARDEGIC [Concomitant]
     Dosage: LONG LASTING
     Route: 048
  9. REMINYL [Concomitant]
     Dosage: LONG LASTING
     Route: 048
  10. ZOPICLONE [Concomitant]
     Dosage: LONG LASTING
     Route: 048
  11. ATORVASTATIN [Concomitant]
  12. GALANTAMINE [Concomitant]
  13. MIRTAZAPINE [Concomitant]
  14. ACETYLSALICYLIC ACID [Concomitant]

REACTIONS (5)
  - Hypomagnesaemia [Recovered/Resolved]
  - Hypocalcaemia [Recovered/Resolved]
  - Hypokalaemia [Recovered/Resolved]
  - Abdominal pain [Recovered/Resolved]
  - Hyperthermia [Recovered/Resolved]
